FAERS Safety Report 4486434-8 (Version None)
Quarter: 2004Q4

REPORT INFORMATION
  Report Type: 
  Country: None (occurrence: None)
  Receive Date: 20041026
  Receipt Date: 20041026
  Transmission Date: 20050328
  Serious: Yes (Hospitalization)
  Sender: FDA-Public Use
  Company Number: None

PATIENT
  Age: 67 Year
  Sex: Female

DRUGS (16)
  1. LEXAPRO [Suspect]
     Indication: DEPRESSION
     Dosage: 10 MG DAILY ORAL
     Route: 048
     Dates: start: 20040220, end: 20040304
  2. MS CONTIN [Concomitant]
  3. OXYCODONE [Concomitant]
  4. LORAZEPAM [Concomitant]
  5. HUMIBI LA [Concomitant]
  6. COMBIVENT [Concomitant]
  7. FUROSEMIDE [Concomitant]
  8. ATENOLOL [Concomitant]
  9. METHIMAZOLE [Concomitant]
  10. PREDNISONE [Concomitant]
  11. CYCLOBENZAPRINE HCL [Concomitant]
  12. ASPIRIN [Concomitant]
  13. ADVAIR [Concomitant]
  14. SUCRALFATE [Concomitant]
  15. MIRALAX [Concomitant]
  16. GEFITINIB [Concomitant]

REACTIONS (4)
  - CONFUSIONAL STATE [None]
  - FALL [None]
  - MENTAL STATUS CHANGES [None]
  - SOMNOLENCE [None]
